FAERS Safety Report 6786293-4 (Version None)
Quarter: 2010Q2

REPORT INFORMATION
  Report Type: 
  Country: None (occurrence: None)
  Receive Date: 20100623
  Receipt Date: 20100617
  Transmission Date: 20101027
  Serious: Yes (Death)
  Sender: FDA-Public Use
  Company Number: DE-ROCHE-710413

PATIENT
  Sex: Female
  Weight: 78 kg

DRUGS (6)
  1. TRASTUZUMAB [Suspect]
     Route: 042
     Dates: start: 20090324, end: 20091117
  2. CISPLATIN [Concomitant]
     Route: 042
     Dates: start: 20090512, end: 20090623
  3. CARBOPLATIN [Concomitant]
     Dosage: AUC2
     Route: 042
     Dates: start: 20090630, end: 20091103
  4. FLUOROURACIL [Concomitant]
     Dosage: MG/QM/24H
     Route: 042
     Dates: start: 20091124, end: 20100216
  5. TYVERB [Concomitant]
     Route: 048
     Dates: start: 20091124, end: 20100216
  6. PACLITAXEL [Concomitant]
     Route: 042
     Dates: start: 20100316, end: 20100324

REACTIONS (1)
  - DISEASE RECURRENCE [None]
